FAERS Safety Report 6715906-8 (Version None)
Quarter: 2010Q2

REPORT INFORMATION
  Report Type: 
  Country: None (occurrence: None)
  Receive Date: 20100507
  Receipt Date: 20100427
  Transmission Date: 20101027
  Serious: Yes (Hospitalization)
  Sender: FDA-Public Use
  Company Number: PHHY2010GB28593

PATIENT
  Age: 50 Year
  Sex: Male

DRUGS (3)
  1. CARBAMAZEPINE [Suspect]
     Indication: EPILEPSY
     Dosage: 400 MG, BID
     Route: 048
  2. KEPPRA [Suspect]
     Indication: EPILEPSY
     Dosage: 750 MG, BID
  3. CLOBAZAM [Concomitant]
     Dosage: UNK

REACTIONS (4)
  - DYSPHAGIA [None]
  - GASTROINTESTINAL OBSTRUCTION [None]
  - LAPAROSCOPY [None]
  - NEOPLASM MALIGNANT [None]
